FAERS Safety Report 8987696 (Version 1)
Quarter: 2012Q4

REPORT INFORMATION
  Report Type: Report from Study
  Country: JP (occurrence: JP)
  Receive Date: 20121227
  Receipt Date: 20121227
  Transmission Date: 20130627
  Serious: Yes (Other)
  Sender: FDA-Public Use
  Company Number: JP-VERTEX PHARMACEUTICAL INC.-AE-2012-009551

PATIENT
  Age: 70 Year
  Sex: Female

DRUGS (18)
  1. VX-950 (TELAPREVIR) [Suspect]
     Indication: CHRONIC HEPATITIS C
     Dosage: 1500 mg, qd
     Route: 048
     Dates: start: 20120306, end: 20120410
  2. VX-950 (TELAPREVIR) [Suspect]
     Dosage: 1000 mg, qd
     Route: 048
     Dates: start: 20120411, end: 20120417
  3. VX-950 (TELAPREVIR) [Suspect]
     Dosage: 750 mg, qd
     Route: 048
     Dates: start: 20120509, end: 20120515
  4. REBETOL [Suspect]
     Indication: CHRONIC HEPATITIS C
     Dosage: 400 mg, qd
     Route: 048
     Dates: start: 20120306, end: 20120327
  5. REBETOL [Suspect]
     Dosage: 200 mg, qd
     Route: 048
     Dates: start: 20120328, end: 20120403
  6. REBETOL [Suspect]
     Dosage: 400 mg, qd
     Route: 048
     Dates: start: 20120502, end: 20120522
  7. REBETOL [Suspect]
     Dosage: 200 mg, qd
     Route: 048
     Dates: start: 20120523, end: 20120529
  8. REBETOL [Suspect]
     Dosage: 200 mg, qd
     Route: 048
     Dates: start: 20120704, end: 20120717
  9. REBETOL [Suspect]
     Dosage: 400 mg, qd
     Route: 048
     Dates: start: 20120718, end: 20120807
  10. REBETOL [Suspect]
     Dosage: 200mg, 400mg/on alternate days
     Route: 048
     Dates: start: 20120808, end: 20120904
  11. PEGINTERFERON ALFA-2B [Suspect]
     Indication: CHRONIC HEPATITIS C
     Dosage: 1.5 ?g/kg, qw
     Route: 058
     Dates: start: 20120306, end: 20120417
  12. PEGINTERFERON ALFA-2B [Suspect]
     Dosage: 1.5 ?g/kg, qw
     Route: 058
     Dates: start: 20120502, end: 20120829
  13. PREMINENT [Concomitant]
     Dosage: 1 DF, qd
     Route: 048
  14. NORVASC [Concomitant]
     Dosage: 5 mg, qd
     Route: 048
  15. NORVASC [Concomitant]
     Dosage: 2.5 mg, qd
     Route: 048
  16. GASTER [Concomitant]
     Dosage: 40 mg, qd
     Route: 048
  17. ELASZYM [Concomitant]
     Dosage: 4800 DF, qd
     Route: 048
  18. ELASZYM [Concomitant]
     Dosage: 5400 DF, qd
     Route: 048

REACTIONS (2)
  - White blood cell count decreased [Not Recovered/Not Resolved]
  - Anaemia [Recovered/Resolved]
